FAERS Safety Report 9236068 (Version 1)
Quarter: 2013Q1

REPORT INFORMATION
  Report Type: Spontaneous
  Country: US (occurrence: None)
  Receive Date: 20121031
  Receipt Date: 20121031
  Transmission Date: 20140127
  Serious: No
  Sender: FDA-Public Use
  Company Number: PHEH2012US011213

PATIENT
  Age: 45 Year
  Sex: Female

DRUGS (6)
  1. GILENYA (FTY) CAPSULE, 0.5MG [Suspect]
     Indication: MULTIPLE SCLEROSIS
     Route: 048
     Dates: start: 20120430, end: 20120517
  2. ADDERALL (AMFETAMINE, ASPARTATE, AMFETAMINE SULFATE, DEXAMFETAMINE SULFATE), 10MG [Concomitant]
  3. PROVIGIL (MODAFINIL), 200MG [Concomitant]
  4. AMBIEN (AOLPIDEM TARTRATE), 10MG [Concomitant]
  5. CELEXA (CITALOPRAM HYDROBROMIDE), 40MG [Concomitant]
  6. PRILOSEC [Concomitant]

REACTIONS (2)
  - Pyrexia [None]
  - Influenza like illness [None]
